FAERS Safety Report 4973248-5 (Version None)
Quarter: 2006Q2

REPORT INFORMATION
  Report Type: 
  Country: None (occurrence: None)
  Receive Date: 20060413
  Receipt Date: 20060413
  Transmission Date: 20061013
  Serious: Yes (Hospitalization, Disabling)
  Sender: FDA-Public Use
  Company Number: None

PATIENT
  Sex: Female
  Weight: 63.5036 kg

DRUGS (1)
  1. ORTHO EVRA [Suspect]
     Indication: CONTRACEPTION
     Dosage: 1 PATCH    1 PATCH/WEEK   TRANSDERMAL
     Route: 062
     Dates: start: 20041201, end: 20050701

REACTIONS (3)
  - ANAEMIA [None]
  - MENORRHAGIA [None]
  - UTERINE ENLARGEMENT [None]
